FAERS Safety Report 16186348 (Version 1)
Quarter: 2019Q2

REPORT INFORMATION
  Report Type: Spontaneous
  Country: US (occurrence: US)
  Receive Date: 20190411
  Receipt Date: 20190411
  Transmission Date: 20190711
  Serious: Yes (Other)
  Sender: FDA-Public Use
  Company Number: US-STRONGBRIDGE BIOPHARMA-2019-STR-000084

PATIENT
  Age: 15 Year
  Sex: Male

DRUGS (1)
  1. KEVEYIS [Suspect]
     Active Substance: DICHLORPHENAMIDE
     Indication: MYOTONIA CONGENITA
     Dosage: 50 MG, BID
     Route: 048
     Dates: start: 20181211

REACTIONS (4)
  - Pneumonia [Recovered/Resolved]
  - Malaise [Recovered/Resolved]
  - Product dose omission [Recovered/Resolved]
  - Disease recurrence [Recovered/Resolved]

NARRATIVE: CASE EVENT DATE: 20190331
